FAERS Safety Report 6361206-8 (Version None)
Quarter: 2009Q3

REPORT INFORMATION
  Report Type: 
  Country: None (occurrence: None)
  Receive Date: 20090918
  Receipt Date: 20090911
  Transmission Date: 20100115
  Serious: Yes (Hospitalization, Disabling)
  Sender: FDA-Public Use
  Company Number: JP-B.I. PHARMACEUTICALS,INC./RIDGEFIELD-2009-BP-04802NB

PATIENT
  Sex: Female
  Weight: 67.1 kg

DRUGS (5)
  1. MICARDIS [Suspect]
     Indication: HYPERTENSION
     Dosage: 40 MG
     Route: 048
     Dates: start: 20060901
  2. GLYCORAN [Concomitant]
     Dosage: 500 MG
     Route: 048
     Dates: start: 20080425
  3. SUNRYTHM [Concomitant]
     Dosage: 50 MG
     Route: 048
  4. AMARYL [Concomitant]
     Dosage: 1 MG
     Route: 048
     Dates: start: 20071024
  5. CRESTOR [Concomitant]
     Dosage: 2.5 MG
     Route: 048
     Dates: start: 20071207

REACTIONS (1)
  - CEREBRAL INFARCTION [None]
